FAERS Safety Report 16954643 (Version 1)
Quarter: 2019Q4

REPORT INFORMATION
  Report Type: Spontaneous
  Country: US (occurrence: US)
  Receive Date: 20191024
  Receipt Date: 20191024
  Transmission Date: 20200122
  Serious: No
  Sender: FDA-Public Use
  Company Number: US-LUPIN PHARMACEUTICALS INC.-2019-05360

PATIENT
  Sex: Female
  Weight: 64 kg

DRUGS (2)
  1. PRAVASTATIN SODIUM TABLETS USP 80 MG [Suspect]
     Active Substance: PRAVASTATIN SODIUM
     Indication: ARTHRITIS
  2. PRAVASTATIN SODIUM TABLETS USP 80 MG [Suspect]
     Active Substance: PRAVASTATIN SODIUM
     Indication: BLOOD CHOLESTEROL INCREASED
     Dosage: UNK UNK, QD (STARTED 8 OR 10 YEAR AGO)
     Route: 048

REACTIONS (1)
  - Pain [Recovered/Resolved]
